FAERS Safety Report 11417844 (Version 2)
Quarter: 2015Q3

REPORT INFORMATION
  Report Type: Spontaneous
  Country: US (occurrence: US)
  Receive Date: 20150825
  Receipt Date: 20150917
  Transmission Date: 20151125
  Serious: Yes (Hospitalization, Other)
  Sender: FDA-Public Use
  Company Number: GXBR2015US001903

PATIENT
  Sex: Female
  Weight: 118.82 kg

DRUGS (17)
  1. METOPROLOL [Concomitant]
     Active Substance: METOPROLOL
     Indication: ARRHYTHMIA
  2. AMIODARONE HYDROCHLORIDE. [Suspect]
     Active Substance: AMIODARONE HYDROCHLORIDE
     Dosage: 400 MG, QID
     Route: 048
  3. MEXILETINE [Suspect]
     Active Substance: MEXILETINE
     Indication: ARRHYTHMIA PROPHYLAXIS
     Dosage: 150 MG, TID
     Route: 048
     Dates: start: 20150322
  4. AMIODARONE HYDROCHLORIDE. [Suspect]
     Active Substance: AMIODARONE HYDROCHLORIDE
     Dosage: 400 MG, BID
     Route: 048
  5. METOPROLOL [Concomitant]
     Active Substance: METOPROLOL
     Indication: HYPERTENSION
     Dosage: 200 MG, QD
     Route: 065
  6. ATORVASTATIN [Concomitant]
     Active Substance: ATORVASTATIN
     Indication: BLOOD CHOLESTEROL INCREASED
     Dosage: 20 MG, UNK
     Route: 065
  7. MEXILETINE [Suspect]
     Active Substance: MEXILETINE
     Indication: VENTRICULAR TACHYCARDIA
  8. PANTOPRAZOLE [Concomitant]
     Active Substance: PANTOPRAZOLE SODIUM
     Indication: GASTROOESOPHAGEAL REFLUX DISEASE
     Dosage: 400 MG, UNK
     Route: 065
  9. PANTOPRAZOLE [Concomitant]
     Active Substance: PANTOPRAZOLE SODIUM
     Indication: ABDOMINAL DISCOMFORT
  10. AMIODARONE HYDROCHLORIDE. [Suspect]
     Active Substance: AMIODARONE HYDROCHLORIDE
     Dosage: 400 MG, TID
     Route: 048
  11. LOSARTAN. [Concomitant]
     Active Substance: LOSARTAN
     Indication: HYPERTENSION
     Dosage: 100 MG, QD
     Route: 065
  12. AMIODARONE HYDROCHLORIDE. [Suspect]
     Active Substance: AMIODARONE HYDROCHLORIDE
     Indication: VENTRICULAR TACHYCARDIA
     Dosage: 400 MG, QD
     Route: 048
     Dates: start: 201505, end: 20150717
  13. MAG OXIDE [Concomitant]
     Active Substance: MAGNESIUM OXIDE
     Indication: BLOOD MAGNESIUM DECREASED
     Dosage: UNK DF, UNK
     Route: 065
  14. AMIODARONE [Suspect]
     Active Substance: AMIODARONE
     Indication: VENTRICULAR TACHYCARDIA
     Dosage: UNK DF, UNK
     Route: 042
     Dates: start: 20150322
  15. AMLODIPINE BESYLATE. [Concomitant]
     Active Substance: AMLODIPINE BESYLATE
     Indication: HYPERTENSION
     Dosage: 10 MG, QD
     Route: 048
  16. VITAMIN B12 [Concomitant]
     Active Substance: CYANOCOBALAMIN
     Indication: VITAMIN B12 DEFICIENCY
     Dosage: EVERY 2 WEEKS
     Route: 058
  17. VALSARTAN. [Concomitant]
     Active Substance: VALSARTAN
     Indication: BLOOD PRESSURE MEASUREMENT
     Dosage: UNK DF, UNK
     Route: 065
     Dates: start: 201502

REACTIONS (4)
  - Optic neuropathy [Recovered/Resolved]
  - Corneal deposits [Not Recovered/Not Resolved]
  - Visual impairment [Not Recovered/Not Resolved]
  - Ear discomfort [Not Recovered/Not Resolved]
